FAERS Safety Report 8833237 (Version 1)
Quarter: 2012Q4

REPORT INFORMATION
  Report Type: 
  Country: JP (occurrence: JP)
  Receive Date: 20121010
  Receipt Date: 20121010
  Transmission Date: 20130627
  Serious: Yes (Hospitalization)
  Sender: FDA-Public Use
  Company Number: PHHY2010JP094804

PATIENT
  Age: 69 Year
  Sex: Female

DRUGS (8)
  1. SANDIMMUN [Suspect]
     Indication: JUVENILE ARTHRITIS
     Dosage: 150 mg, QD
     Route: 042
  2. SANDIMMUN [Suspect]
     Indication: THROMBOTIC THROMBOCYTOPENIC PURPURA
     Dosage: 40 mg, QD
     Route: 042
  3. SANDIMMUN [Suspect]
     Dosage: 100 mg, QD
     Route: 042
  4. METHYLPREDNISOLONE [Suspect]
     Indication: JUVENILE ARTHRITIS
  5. PREDNISOLONE SANDOZ [Suspect]
     Indication: JUVENILE ARTHRITIS
     Dosage: 60 mg, QD
     Route: 048
  6. PREDNISOLONE SANDOZ [Suspect]
     Dosage: 1 g, QD
  7. PREDNISOLONE SANDOZ [Suspect]
     Dosage: 40 mg, QD
  8. PREDNISOLONE SANDOZ [Suspect]
     Dosage: 20 mg, QD

REACTIONS (23)
  - Cerebral microangiopathy [Not Recovered/Not Resolved]
  - Grand mal convulsion [Recovered/Resolved]
  - Cerebral infarction [Not Recovered/Not Resolved]
  - Agitation [Recovered/Resolved]
  - Coma [Recovered/Resolved]
  - Confusional state [Recovered/Resolved]
  - Diffuse alveolar damage [Recovered/Resolved]
  - Respiratory distress [Recovered/Resolved]
  - Hypoxia [Recovered/Resolved]
  - Pleural effusion [Recovered/Resolved]
  - Hypercapnia [Recovered/Resolved]
  - Hypocalcaemia [Recovered/Resolved]
  - Serum ferritin increased [Recovered/Resolved]
  - Drug resistance [Recovered/Resolved]
  - Thrombotic thrombocytopenic purpura [Recovered/Resolved]
  - Anaemia [Recovered/Resolved]
  - Pyrexia [Recovered/Resolved]
  - Rash [Recovered/Resolved]
  - Thrombocytopenia [Recovered/Resolved]
  - Renal failure acute [Recovered/Resolved]
  - Oliguria [Recovered/Resolved]
  - Hyperphosphataemia [Recovered/Resolved]
  - Drug ineffective [Unknown]
